FAERS Safety Report 7492084-1 (Version None)
Quarter: 2011Q2

REPORT INFORMATION
  Report Type: 
  Country: None (occurrence: None)
  Receive Date: 20110519
  Receipt Date: 20110509
  Transmission Date: 20111010
  Serious: Yes (Other)
  Sender: FDA-Public Use
  Company Number: US-UCBSA-021536

PATIENT
  Age: 32 Year
  Sex: Female

DRUGS (19)
  1. KEPPRA XR [Suspect]
     Indication: EPILEPSY
     Dates: start: 20101029, end: 20101105
  2. VITAMIN B COMPLEX CAP [Concomitant]
     Indication: PREGNANCY
     Dosage: 2 PILLS
     Route: 048
     Dates: start: 20100101
  3. CALCIUM PLUS VITAMIN D [Concomitant]
     Indication: PREGNANCY
     Route: 048
     Dates: start: 20100101
  4. VITAMIN A [Concomitant]
     Indication: NIGHT BLINDNESS
     Route: 048
     Dates: start: 20100101
  5. KEPPRA [Suspect]
     Indication: EPILEPSY
     Dates: start: 20100930, end: 20101013
  6. KEPPRA XR [Suspect]
     Dates: start: 20101106, end: 20110106
  7. KEPPRA [Suspect]
     Dates: start: 20110120
  8. FERROUS SULFATE TAB [Concomitant]
     Indication: PREGNANCY
     Route: 048
     Dates: start: 20100101
  9. VITAMIN A [Concomitant]
     Indication: PREGNANCY
     Route: 048
     Dates: start: 20100101
  10. SUPER CRANBERRY [Concomitant]
     Indication: PROPHYLAXIS
     Route: 048
     Dates: start: 20100101
  11. VITAMIN B6 [Concomitant]
     Indication: PREGNANCY
     Route: 048
     Dates: start: 20100101
  12. FISH OIL [Concomitant]
     Indication: PREGNANCY
     Route: 048
     Dates: start: 20100101
  13. DIETARY SUPPLEMENT [Concomitant]
     Dates: start: 20100101
  14. MAGNESIUM [Concomitant]
     Indication: PREGNANCY
     Route: 048
     Dates: start: 20100101
  15. L-TYROSINE [Concomitant]
     Indication: PREGNANCY
     Route: 048
     Dates: start: 20100101
  16. KEPPRA XR [Suspect]
     Dates: start: 20110107, end: 20110119
  17. KEPPRA [Suspect]
     Dates: start: 20101014, end: 20101028
  18. FOLIC ACID [Concomitant]
     Indication: PREGNANCY
     Route: 048
     Dates: start: 20100901
  19. VITAMIN E [Concomitant]
     Indication: PREGNANCY
     Route: 048
     Dates: start: 20100101

REACTIONS (7)
  - PRE-ECLAMPSIA [None]
  - CONVULSION [None]
  - GRAND MAL CONVULSION [None]
  - URINARY TRACT INFECTION [None]
  - GESTATIONAL HYPERTENSION [None]
  - PETIT MAL EPILEPSY [None]
  - DRUG EXPOSURE DURING PREGNANCY [None]
